FAERS Safety Report 5901758-2 (Version None)
Quarter: 2008Q3

REPORT INFORMATION
  Report Type: 
  Country: None (occurrence: None)
  Receive Date: 20080929
  Receipt Date: 20080925
  Transmission Date: 20090109
  Serious: Yes (Death, Hospitalization, Other)
  Sender: FDA-Public Use
  Company Number: US-BRISTOL-MYERS SQUIBB COMPANY-14330294

PATIENT
  Age: 53 Year
  Sex: Female
  Weight: 54 kg

DRUGS (3)
  1. CISPLATIN [Suspect]
     Indication: HEAD AND NECK CANCER
     Dosage: THERAPY STARTED ON 19AUG08. TOTAL NUMBER OF COURSES TO DATE 2.
     Route: 042
     Dates: start: 20080825, end: 20080825
  2. CETUXIMAB [Suspect]
     Indication: HEAD AND NECK CANCER
     Dates: start: 20080915, end: 20080915
  3. RADIATION THERAPY [Suspect]
     Indication: HEAD AND NECK CANCER
     Dosage: 1620 DF = 1620 CGY. DATE OF LAST TREATMENT 05SEP08. NUMBER OF FRACTIONS 30.3240CGY FM 15SEP-18SEP08.

REACTIONS (3)
  - HYPOKALAEMIA [None]
  - HYPONATRAEMIA [None]
  - SUDDEN DEATH [None]
